FAERS Safety Report 6641809-3 (Version None)
Quarter: 2010Q1

REPORT INFORMATION
  Report Type: 
  Country: None (occurrence: None)
  Receive Date: 20100316
  Receipt Date: 20100304
  Transmission Date: 20100710
  Serious: Yes (Hospitalization, Other)
  Sender: FDA-Public Use
  Company Number: 2008US002671

PATIENT
  Age: 39 Year
  Sex: Female
  Weight: 113 kg

DRUGS (2)
  1. AMEVIVE [Suspect]
     Indication: PSORIASIS
     Dosage: 15 MG, WEEKLY, INTRAMUSCULAR; 15 MG, WEEKLY, INTRAMUSCULAR
     Route: 030
     Dates: start: 20040224, end: 20040504
  2. AMEVIVE [Suspect]
     Indication: PSORIASIS
     Dosage: 15 MG, WEEKLY, INTRAMUSCULAR; 15 MG, WEEKLY, INTRAMUSCULAR
     Route: 030
     Dates: start: 20050106, end: 20050324

REACTIONS (5)
  - ARTHRALGIA [None]
  - CHILLS [None]
  - DRUG INEFFECTIVE [None]
  - PYREXIA [None]
  - T-CELL LYMPHOMA [None]
